FAERS Safety Report 7883965-5 (Version None)
Quarter: 2011Q4

REPORT INFORMATION
  Report Type: 
  Country: None (occurrence: None)
  Receive Date: 20111102
  Receipt Date: 20111019
  Transmission Date: 20120403
  Serious: Yes (Hospitalization, Other)
  Sender: FDA-Public Use
  Company Number: PHHY2011JP92928

PATIENT
  Age: 71 Year
  Sex: Female

DRUGS (2)
  1. NEORAL [Suspect]
     Indication: INTERSTITIAL LUNG DISEASE
     Dosage: 100 MG, UNK
     Route: 048
  2. PREDNISOLONE [Concomitant]
     Indication: INTERSTITIAL LUNG DISEASE
     Dosage: 25 MG, UNK
     Route: 048

REACTIONS (3)
  - CYTOMEGALOVIRUS MUCOCUTANEOUS ULCER [None]
  - DYSPNOEA [None]
  - DECUBITUS ULCER [None]
